FAERS Safety Report 13742658 (Version 4)
Quarter: 2017Q4

REPORT INFORMATION
  Report Type: Spontaneous
  Country: BR (occurrence: BR)
  Receive Date: 20170711
  Receipt Date: 20171016
  Transmission Date: 20180320
  Serious: Yes (Hospitalization, Other)
  Sender: FDA-Public Use
  Company Number: BR-PFIZER INC-2017292174

PATIENT
  Age: 76 Year
  Sex: Female

DRUGS (9)
  1. LIPITOR [Suspect]
     Active Substance: ATORVASTATIN CALCIUM
     Dosage: 20 MG, 2X/DAY (IN THE MORNING AND AFTERNOON)
  2. AAS PROTECT [Concomitant]
     Active Substance: ASPIRIN
     Dosage: 2 PER DAY
     Dates: start: 1997
  3. TAPAZOL /00022901/ [Concomitant]
     Dosage: UNK
     Dates: start: 1997
  4. LIPITOR [Suspect]
     Active Substance: ATORVASTATIN CALCIUM
     Indication: BLOOD CHOLESTEROL INCREASED
     Dosage: 20 MG, 1X/DAY (EVERY NIGHT)
     Dates: start: 2008
  5. PROZAC [Concomitant]
     Active Substance: FLUOXETINE HYDROCHLORIDE
     Dosage: UNK
  6. CARDIZEM [Concomitant]
     Active Substance: DILTIAZEM HYDROCHLORIDE
     Dosage: 2 PER DAY
     Dates: start: 1997
  7. VASOGARD [Concomitant]
     Active Substance: CILOSTAZOL
     Indication: CARDIOVASCULAR INSUFFICIENCY
     Dosage: UNK
     Dates: start: 1997
  8. SUSTRATE [Concomitant]
     Active Substance: PROPATYL NITRATE
     Dosage: 2 PER, DAILY
     Dates: start: 1997
  9. SUFRATE [Concomitant]
     Dosage: UNK

REACTIONS (7)
  - Product use issue [Unknown]
  - Femur fracture [Recovered/Resolved]
  - Paraesthesia [Recovered/Resolved]
  - Fall [Recovered/Resolved]
  - Pelvic fracture [Recovered/Resolved]
  - Upper limb fracture [Recovered/Resolved]
  - Groin pain [Recovered/Resolved]

NARRATIVE: CASE EVENT DATE: 20151031
